FAERS Safety Report 5903158-8 (Version None)
Quarter: 2008Q3

REPORT INFORMATION
  Report Type: 
  Country: None (occurrence: None)
  Receive Date: 20080929
  Receipt Date: 20080929
  Transmission Date: 20090109
  Serious: Yes (Other)
  Sender: FDA-Public Use
  Company Number: None

PATIENT
  Age: 25 Year
  Sex: Female
  Weight: 99.7913 kg

DRUGS (3)
  1. PRISTIQ [Suspect]
     Indication: GENERALISED ANXIETY DISORDER
     Dosage: 50 MG DAILY PO
     Route: 048
     Dates: start: 20080718, end: 20080925
  2. PRISTIQ [Suspect]
     Indication: PANIC DISORDER
     Dosage: 50 MG DAILY PO
     Route: 048
     Dates: start: 20080718, end: 20080925
  3. XANAX [Concomitant]

REACTIONS (5)
  - ASTHENIA [None]
  - CONDITION AGGRAVATED [None]
  - DIZZINESS [None]
  - DRY MOUTH [None]
  - TREMOR [None]
